FAERS Safety Report 5074021-2 (Version None)
Quarter: 2006Q3

REPORT INFORMATION
  Report Type: 
  Country: None (occurrence: None)
  Receive Date: 20060808
  Receipt Date: 20060316
  Transmission Date: 20061208
  Serious: No
  Sender: FDA-Public Use
  Company Number: US-AMGEN-KDL172877

PATIENT
  Age: 82 Year
  Sex: Female
  Weight: 87.2 kg

DRUGS (6)
  1. PROCRIT [Suspect]
     Indication: ANAEMIA OF MALIGNANT DISEASE
     Route: 058
     Dates: start: 20060104
  2. IRON [Concomitant]
     Route: 048
  3. BENZONATATE [Concomitant]
     Route: 048
  4. POTASSIUM CHLORIDE [Concomitant]
  5. HYDROCHLOROTHIAZIDE [Concomitant]
  6. VERAPAMIL [Concomitant]

REACTIONS (2)
  - FAECES DISCOLOURED [None]
  - STOMACH DISCOMFORT [None]
